FAERS Safety Report 21328772 (Version 1)
Quarter: 2022Q3

REPORT INFORMATION
  Report Type: Spontaneous
  Country: ES (occurrence: ES)
  Receive Date: 20220913
  Receipt Date: 20220913
  Transmission Date: 20221027
  Serious: Yes (Other)
  Sender: FDA-Public Use
  Company Number: None

PATIENT
  Age: 54 Year
  Sex: Male

DRUGS (1)
  1. SORAFENIB [Suspect]
     Active Substance: SORAFENIB
     Indication: Gastrointestinal stromal tumour
     Dosage: 400 MILLIGRAM, BID (EVERY 12 HOURS)
     Route: 048
     Dates: start: 20220202, end: 20220714

REACTIONS (4)
  - Neurotoxicity [Unknown]
  - Oedema [Unknown]
  - Anaemia [Unknown]
  - Asthenia [Unknown]

NARRATIVE: CASE EVENT DATE: 20220301
